FAERS Safety Report 14322687 (Version 1)
Quarter: 2017Q4

REPORT INFORMATION
  Report Type: Spontaneous
  Country: US (occurrence: US)
  Receive Date: 20171225
  Receipt Date: 20171225
  Transmission Date: 20180321
  Serious: Yes (Other)
  Sender: FDA-Public Use
  Company Number: US-MYLANLABS-2017M1080191

PATIENT
  Age: 7 Year
  Sex: Male

DRUGS (1)
  1. METHIMAZOLE. [Suspect]
     Active Substance: METHIMAZOLE
     Indication: BASEDOW^S DISEASE
     Dosage: 2.5 MG, QOD
     Route: 048
     Dates: start: 201702

REACTIONS (2)
  - Coeliac disease [Unknown]
  - Product physical issue [Unknown]

NARRATIVE: CASE EVENT DATE: 20171009
